FAERS Safety Report 11823446 (Version 1)
Quarter: 2015Q4

REPORT INFORMATION
  Report Type: Spontaneous
  Country: US (occurrence: US)
  Receive Date: 20151210
  Receipt Date: 20151210
  Transmission Date: 20160305
  Serious: No
  Sender: FDA-Public Use
  Company Number: US-AKRIMAX-NRP-2015-0007

PATIENT
  Age: 69 Year
  Sex: Female

DRUGS (1)
  1. NITROGLYCERIN LINGUAL AEROSOL [Suspect]
     Active Substance: NITROGLYCERIN
     Indication: PRODUCT USE ISSUE
     Dosage: AS NEEDED
     Dates: start: 20150611

REACTIONS (2)
  - Headache [Unknown]
  - Drug ineffective for unapproved indication [None]

NARRATIVE: CASE EVENT DATE: 201506
